FAERS Safety Report 13621714 (Version 2)
Quarter: 2018Q2

REPORT INFORMATION
  Report Type: Spontaneous
  Country: US (occurrence: US)
  Receive Date: 20170607
  Receipt Date: 20180511
  Transmission Date: 20180711
  Serious: No
  Sender: FDA-Public Use
  Company Number: US-PFIZER INC-2017245982

PATIENT
  Age: 34 Year
  Sex: Female
  Weight: 61.23 kg

DRUGS (11)
  1. BENADRYL [Concomitant]
     Active Substance: DIPHENHYDRAMINE HYDROCHLORIDE
     Indication: SLEEP DISORDER
     Dosage: 25MG TABLETS BY MOUTH, NOT EVERY NIGHT
     Route: 048
  2. IBUPROFEN. [Suspect]
     Active Substance: IBUPROFEN
     Indication: BACK PAIN
     Dosage: 200MG FOUR TABLETS BY MOUTH TWICE A DAY
     Route: 048
     Dates: end: 201705
  3. OXYCODONE [Suspect]
     Active Substance: OXYCODONE
     Dosage: 30 MG, UNK
     Route: 048
     Dates: end: 201705
  4. PANTOPRAZOLE [Concomitant]
     Active Substance: PANTOPRAZOLE
     Indication: DYSPEPSIA
     Dosage: 40 MG, DAILY
     Route: 048
     Dates: start: 201701
  5. VENTOLIN HFA [Concomitant]
     Active Substance: ALBUTEROL SULFATE
     Indication: ASTHMA
     Dosage: 90MCG PER INHALATION ONE INHALATION BY MOUTH WHEN NEEDED
     Route: 055
     Dates: start: 2016
  6. ALBUTEROL SULFATE. [Concomitant]
     Active Substance: ALBUTEROL SULFATE
     Indication: ASTHMA
     Dosage: 12.5MG-3ML PER BREATHING TREATMENT, ONE TREATMENT WHEN NEEDED
  7. BENADRYL [Concomitant]
     Active Substance: DIPHENHYDRAMINE HYDROCHLORIDE
     Dosage: TWO 25MG TABLETS BY MOUTH AT NIGHT
     Route: 048
  8. IBUPROFEN. [Suspect]
     Active Substance: IBUPROFEN
     Indication: HEADACHE
  9. ONDANSETRON [Concomitant]
     Active Substance: ONDANSETRON
     Indication: NAUSEA
     Dosage: 8MG ONE TABLET EVERY EIGHT HOURS AS NEEDED
     Route: 048
     Dates: start: 201704
  10. BUPRENORPHINE. [Concomitant]
     Active Substance: BUPRENORPHINE
     Indication: DEPENDENCE
     Dosage: 8MG THREE TABLETS UNDER TONGUE EVERY DAY
     Route: 060
  11. CLONAZEPAM. [Concomitant]
     Active Substance: CLONAZEPAM
     Indication: ANXIETY
     Dosage: 1MG ONE TABLET BY MOUTH DAILY AS NEEDED
     Route: 048
     Dates: start: 2014

REACTIONS (17)
  - Muscle spasms [Recovered/Resolved]
  - Vomiting [Recovered/Resolved]
  - Poor quality drug administered [Unknown]
  - Drug screen positive [Unknown]
  - Abdominal discomfort [Recovered/Resolved]
  - Nausea [Not Recovered/Not Resolved]
  - Visual impairment [Not Recovered/Not Resolved]
  - Decreased appetite [Recovered/Resolved]
  - Malaise [Recovered/Resolved]
  - Anger [Recovered/Resolved]
  - Diarrhoea [Recovered/Resolved]
  - Fatigue [Recovered/Resolved]
  - Irritability [Recovered/Resolved]
  - Somnolence [Recovered/Resolved]
  - Intentional product misuse [Unknown]
  - Diplopia [Not Recovered/Not Resolved]
  - Product commingling [Unknown]

NARRATIVE: CASE EVENT DATE: 201705
